FAERS Safety Report 8286425-5 (Version None)
Quarter: 2012Q2

REPORT INFORMATION
  Report Type: 
  Country: None (occurrence: None)
  Receive Date: 20120411
  Receipt Date: 20120411
  Transmission Date: 20120825
  Serious: Yes (Other)
  Sender: FDA-Public Use
  Company Number: None

PATIENT
  Age: 70 Year
  Sex: Male
  Weight: 102.0593 kg

DRUGS (5)
  1. CRESTOR [Concomitant]
  2. ACTOS [Suspect]
     Dosage: 15 MG 1 A DAY
     Dates: start: 20031124
  3. POTASSIUM CHLORIDE [Concomitant]
  4. DIOVAN [Concomitant]
  5. LASIX [Concomitant]

REACTIONS (3)
  - ABDOMINAL PAIN UPPER [None]
  - CHEST PAIN [None]
  - MYALGIA [None]
